FAERS Safety Report 22131512 (Version 1)
Quarter: 2023Q1

REPORT INFORMATION
  Report Type: Spontaneous
  Country: US (occurrence: US)
  Receive Date: 20230323
  Receipt Date: 20230323
  Transmission Date: 20230418
  Serious: No
  Sender: FDA-Public Use
  Company Number: US-ALLERGAN-2241458US

PATIENT
  Age: 45 Year
  Sex: Male
  Weight: 115.66 kg

DRUGS (4)
  1. LASTACAFT [Suspect]
     Active Substance: ALCAFTADINE
     Indication: Allergy prophylaxis
     Dosage: 2 GTT, QD
     Route: 047
     Dates: start: 202209, end: 202209
  2. LASTACAFT [Suspect]
     Active Substance: ALCAFTADINE
     Dosage: 2 GTT, QD
     Route: 047
     Dates: start: 202208, end: 202208
  3. SIMVASTATIN [Concomitant]
     Active Substance: SIMVASTATIN
     Indication: Blood cholesterol increased
     Dosage: UNK
  4. COENZYME Q10 [Concomitant]
     Active Substance: DIETARY SUPPLEMENT\UBIDECARENONE
     Indication: Supplementation therapy
     Dosage: UNK

REACTIONS (4)
  - Product storage error [Unknown]
  - Eye pruritus [Recovered/Resolved]
  - Ocular hyperaemia [Recovered/Resolved]
  - Suspected product contamination [Unknown]

NARRATIVE: CASE EVENT DATE: 20220801
